FAERS Safety Report 8879686 (Version 3)
Quarter: 2013Q1

REPORT INFORMATION
  Report Type: Spontaneous
  Country: JP (occurrence: JP)
  Receive Date: 20121031
  Receipt Date: 20130214
  Transmission Date: 20140127
  Serious: Yes (Hospitalization, Other)
  Sender: FDA-Public Use
  Company Number: JP-GLAXOSMITHKLINE-B0841155A

PATIENT
  Age: 78 Year
  Sex: Female
  Weight: 56 kg

DRUGS (4)
  1. HYCAMTIN [Suspect]
     Indication: OVARIAN CANCER RECURRENT
     Dosage: .5MGM2 PER DAY
     Route: 042
     Dates: start: 20120319
  2. NASEA [Concomitant]
     Dosage: .1MG PER DAY
     Route: 048
     Dates: start: 20120319, end: 20120321
  3. GRANISETRON [Concomitant]
     Dosage: 3MG PER DAY
     Route: 042
     Dates: start: 20120507
  4. EMEND [Concomitant]
     Route: 048
     Dates: start: 20120507

REACTIONS (6)
  - Nausea [Recovered/Resolved]
  - White blood cell count decreased [Recovered/Resolved]
  - Neutrophil count decreased [Recovered/Resolved]
  - Anaemia [Recovering/Resolving]
  - Platelet count decreased [Recovered/Resolved]
  - Decreased appetite [Recovered/Resolved]
